FAERS Safety Report 6369991-6 (Version None)
Quarter: 2009Q3

REPORT INFORMATION
  Report Type: 
  Country: None (occurrence: None)
  Receive Date: 20090923
  Receipt Date: 20070601
  Transmission Date: 20100115
  Serious: No
  Sender: FDA-Public Use
  Company Number: US-ASTRAZENECA-2006UW04462

PATIENT
  Age: 548 Month
  Sex: Male
  Weight: 75.3 kg

DRUGS (21)
  1. SEROQUEL [Suspect]
     Indication: DEPRESSION
     Dosage: 100 MG 1 TO 2 TABLETS NIGHTLY
     Route: 048
     Dates: start: 20040502
  2. SEROQUEL [Suspect]
     Indication: ANXIETY
     Dosage: 100 MG 1 TO 2 TABLETS NIGHTLY
     Route: 048
     Dates: start: 20040502
  3. SEROQUEL [Suspect]
     Dosage: 100-300 MG DAILY
     Route: 048
     Dates: start: 20040301, end: 20041201
  4. SEROQUEL [Suspect]
     Dosage: 100-300 MG DAILY
     Route: 048
     Dates: start: 20040301, end: 20041201
  5. CORGARD [Concomitant]
     Dosage: 20 MG 1 PILL DAILY
     Route: 048
  6. ACCUPRIL [Concomitant]
     Route: 048
  7. PRILOSEC OTC [Concomitant]
     Indication: DYSPEPSIA
     Route: 048
  8. REMERON [Concomitant]
     Indication: WEIGHT INCREASED
     Dosage: 15-45 MG
     Route: 048
  9. LEXAPRO [Concomitant]
     Indication: PSORIATIC ARTHROPATHY
     Dosage: 10-28 MG
     Route: 048
  10. AVANDAMET [Concomitant]
     Indication: DIABETES MELLITUS
     Dosage: 2/500 MG TWICE A DAILY
     Route: 048
  11. CLONIDINE [Concomitant]
     Dosage: 0.1-3 MG THREE TIMES A DAY
     Route: 048
  12. NITROGLYCERIN [Concomitant]
     Indication: CARDIAC DISORDER
     Dosage: 0.4 - 6.5 MG
     Route: 048
  13. SPIRONOLACTONE [Concomitant]
     Dosage: 25-50 MG
     Route: 048
  14. ENBREL [Concomitant]
     Dosage: 25-50 MG
     Route: 030
  15. PAXIL [Concomitant]
     Dosage: 20-40 MG
     Route: 048
  16. KLONOPIN [Concomitant]
     Route: 048
  17. ASPIRIN [Concomitant]
     Dosage: 81-325 MG
     Route: 048
  18. LEVOTHYROXINE SODIUM [Concomitant]
     Indication: HYPOTHYROIDISM
     Dosage: 50-75 MCG
     Route: 048
  19. HYTRIN [Concomitant]
     Route: 048
  20. LASIX [Concomitant]
  21. TRAZODONE [Concomitant]
     Dosage: 100-150 MG
     Route: 048

REACTIONS (3)
  - BLOOD CHOLESTEROL INCREASED [None]
  - DIABETES MELLITUS [None]
  - THYROID DISORDER [None]
